FAERS Safety Report 7373615-9 (Version None)
Quarter: 2011Q1

REPORT INFORMATION
  Report Type: 
  Country: None (occurrence: None)
  Receive Date: 20110325
  Receipt Date: 20101011
  Transmission Date: 20110831
  Serious: Yes (Hospitalization, Other)
  Sender: FDA-Public Use
  Company Number: US-BAYER-201019924NA

PATIENT
  Sex: Female
  Weight: 97.506 kg

DRUGS (2)
  1. YAZ [Suspect]
     Indication: PREMENSTRUAL SYNDROME
     Dosage: UNK
     Dates: start: 20090501
  2. YASMIN [Suspect]
     Route: 048
     Dates: start: 20090401

REACTIONS (2)
  - PULMONARY EMBOLISM [None]
  - THROMBOSIS [None]
